FAERS Safety Report 15185330 (Version 2)
Quarter: 2018Q3

REPORT INFORMATION
  Report Type: Spontaneous
  Country: US (occurrence: US)
  Receive Date: 20180723
  Receipt Date: 20180725
  Transmission Date: 20181010
  Serious: No
  Sender: FDA-Public Use
  Company Number: US-009507513-1807USA008471

PATIENT

DRUGS (2)
  1. INTEGRILIN [Suspect]
     Active Substance: EPTIFIBATIDE
     Indication: ANTIPLATELET THERAPY
     Dosage: 2 UG/KG/MIN
  2. INTEGRILIN [Suspect]
     Active Substance: EPTIFIBATIDE
     Dosage: 1 UG/KG/MIN

REACTIONS (1)
  - Off label use [Unknown]
